FAERS Safety Report 8543393-6 (Version None)
Quarter: 2012Q3

REPORT INFORMATION
  Report Type: 
  Country: None (occurrence: None)
  Receive Date: 20120727
  Receipt Date: 20120716
  Transmission Date: 20120928
  Serious: Yes (Hospitalization)
  Sender: FDA-Public Use
  Company Number: US-BAYER-2012-028609

PATIENT
  Age: 35 Year
  Sex: Female
  Weight: 72.562 kg

DRUGS (5)
  1. PRAVACHOL [Concomitant]
  2. YASMIN [Suspect]
     Dosage: UNK
     Dates: start: 20100101, end: 20100301
  3. METFORMIN HYDROCHLORIDE [Concomitant]
  4. PROZAC [Concomitant]
  5. ALBUTEROL [Concomitant]

REACTIONS (4)
  - DEEP VEIN THROMBOSIS [None]
  - INJURY [None]
  - PAIN [None]
  - PULMONARY EMBOLISM [None]
